FAERS Safety Report 7451261-6 (Version None)
Quarter: 2011Q2

REPORT INFORMATION
  Report Type: 
  Country: None (occurrence: None)
  Receive Date: 20110422
  Receipt Date: 20110411
  Transmission Date: 20111010
  Serious: No
  Sender: FDA-Public Use
  Company Number: SPI201100068

PATIENT
  Age: 46 Year
  Sex: Female
  Weight: 52.2 kg

DRUGS (8)
  1. ENZYMES [Concomitant]
  2. PROBIOTICS [Concomitant]
  3. AMITIZA [Suspect]
     Indication: CONSTIPATION
     Dosage: 24 MCG, BID, ORAL; 24 MCG, QD, ORAL; 8 MCG, BID, ORAL
     Route: 048
     Dates: start: 20090101, end: 20090101
  4. AMITIZA [Suspect]
     Indication: IRRITABLE BOWEL SYNDROME
     Dosage: 24 MCG, BID, ORAL; 24 MCG, QD, ORAL; 8 MCG, BID, ORAL
     Route: 048
     Dates: start: 20090101, end: 20090101
  5. AMITIZA [Suspect]
     Indication: CONSTIPATION
     Dosage: 24 MCG, BID, ORAL; 24 MCG, QD, ORAL; 8 MCG, BID, ORAL
     Route: 048
     Dates: start: 20090101, end: 20090101
  6. AMITIZA [Suspect]
     Indication: IRRITABLE BOWEL SYNDROME
     Dosage: 24 MCG, BID, ORAL; 24 MCG, QD, ORAL; 8 MCG, BID, ORAL
     Route: 048
     Dates: start: 20090101, end: 20090101
  7. AMITIZA [Suspect]
     Indication: CONSTIPATION
     Dosage: 24 MCG, BID, ORAL; 24 MCG, QD, ORAL; 8 MCG, BID, ORAL
     Route: 048
     Dates: start: 20110314, end: 20110317
  8. AMITIZA [Suspect]
     Indication: IRRITABLE BOWEL SYNDROME
     Dosage: 24 MCG, BID, ORAL; 24 MCG, QD, ORAL; 8 MCG, BID, ORAL
     Route: 048
     Dates: start: 20110314, end: 20110317

REACTIONS (6)
  - FLATULENCE [None]
  - DYSPNOEA [None]
  - DIZZINESS [None]
  - DRUG INEFFECTIVE [None]
  - GASTROINTESTINAL PAIN [None]
  - ABDOMINAL DISCOMFORT [None]
